FAERS Safety Report 8489055-5 (Version None)
Quarter: 2012Q2

REPORT INFORMATION
  Report Type: 
  Country: None (occurrence: None)
  Receive Date: 20120626
  Receipt Date: 20120612
  Transmission Date: 20120825
  Serious: Yes (Hospitalization, Other)
  Sender: FDA-Public Use
  Company Number: 2012SP027881

PATIENT
  Age: 57 Year
  Sex: Male
  Weight: 66.5 kg

DRUGS (7)
  1. RIBAVIRIN [Suspect]
     Indication: HEPATITIS C
     Dosage: 800 MG; 800 MG;
     Dates: start: 20111006
  2. OXAROL [Concomitant]
  3. PEGINTERFERON ALFA-2B [Suspect]
     Indication: HEPATITIS C
     Dosage: 100 MCG; QW;
     Dates: start: 20111006
  4. LOXONIN	 /00690702/ [Concomitant]
  5. MICARDIS [Concomitant]
  6. METHADERM [Concomitant]
  7. MK-7009 (INVESTIGATIONAL DRUG) [Suspect]
     Indication: HEPATITIS C
     Dosage: 300 MG;HID;
     Dates: start: 20111006

REACTIONS (1)
  - HEPATIC NEOPLASM MALIGNANT [None]
